FAERS Safety Report 10454143 (Version 1)
Quarter: 2014Q3

REPORT INFORMATION
  Report Type: Spontaneous
  Country: US (occurrence: US)
  Receive Date: 20140915
  Receipt Date: 20140915
  Transmission Date: 20150326
  Serious: Yes (Hospitalization)
  Sender: FDA-Public Use
  Company Number: US-BRISTOL-MYERS SQUIBB COMPANY-21095542

PATIENT
  Age: 98 Year
  Sex: Female

DRUGS (6)
  1. NITRO-DUR [Concomitant]
     Active Substance: NITROGLYCERIN
     Dosage: PATCH
     Route: 062
  2. CLONIDINE PATCH [Concomitant]
     Route: 062
  3. LOPRESSOR [Concomitant]
     Active Substance: METOPROLOL TARTRATE
  4. LASIX [Concomitant]
     Active Substance: FUROSEMIDE
  5. ELIQUIS [Suspect]
     Active Substance: APIXABAN
     Dosage: DOSE FREQ REDUCED:2.5MG/DAILY
     Dates: start: 20140224
  6. PREVACID [Concomitant]
     Active Substance: LANSOPRAZOLE

REACTIONS (1)
  - Adverse event [Unknown]

NARRATIVE: CASE EVENT DATE: 2014
